FAERS Safety Report 7138056-8 (Version None)
Quarter: 2010Q4

REPORT INFORMATION
  Report Type: 
  Country: None (occurrence: None)
  Receive Date: 20101103
  Receipt Date: 20100615
  Transmission Date: 20110411
  Serious: Yes (Other)
  Sender: FDA-Public Use
  Company Number: US-WYE-H15705810

PATIENT
  Age: 42 Year
  Sex: Male
  Weight: 88.08 kg

DRUGS (1)
  1. EFFEXOR XR [Suspect]
     Dosage: 1 DOSE 1X PER 1 TOT, ORAL
     Route: 048
     Dates: start: 20040101

REACTIONS (4)
  - FEELING ABNORMAL [None]
  - HYPERSOMNIA [None]
  - INTENTIONAL DRUG MISUSE [None]
  - SUICIDAL IDEATION [None]
